FAERS Safety Report 6675770-2 (Version None)
Quarter: 2010Q2

REPORT INFORMATION
  Report Type: 
  Country: None (occurrence: None)
  Receive Date: 20100409
  Receipt Date: 20100326
  Transmission Date: 20101027
  Serious: Yes (Life-Threatening)
  Sender: FDA-Public Use
  Company Number: GB-AMGEN-US180840

PATIENT
  Sex: Female
  Weight: 62.2 kg

DRUGS (3)
  1. ENBREL [Suspect]
     Indication: RHEUMATOID ARTHRITIS
     Route: 058
     Dates: start: 20030317, end: 20040419
  2. ASPIRIN [Suspect]
     Indication: TRANSIENT ISCHAEMIC ATTACK
     Route: 048
     Dates: start: 20040219, end: 20040504
  3. MELOXICAM [Concomitant]
     Indication: INFLAMMATION
     Route: 048
     Dates: start: 20030501, end: 20040419

REACTIONS (3)
  - BONE MARROW FAILURE [None]
  - NEUTROPENIA [None]
  - WHITE BLOOD CELL COUNT DECREASED [None]
